FAERS Safety Report 7674128-7 (Version None)
Quarter: 2011Q3

REPORT INFORMATION
  Report Type: 
  Country: None (occurrence: None)
  Receive Date: 20110810
  Receipt Date: 20110727
  Transmission Date: 20111222
  Serious: Yes (Death, Hospitalization, Other)
  Sender: FDA-Public Use
  Company Number: US-ELI_LILLY_AND_COMPANY-US201104000444

PATIENT
  Sex: Male
  Weight: 68.29 kg

DRUGS (12)
  1. VALTREX [Concomitant]
     Dosage: 500 MG, PRN
  2. PREDNISONE [Concomitant]
     Dosage: 40 MG, QD
  3. ADVAIR DISKUS 100/50 [Concomitant]
     Dosage: UNK, BID
  4. CIPROFLOXACIN HCL [Concomitant]
     Dosage: 500 MG, BID
  5. PRADAXA [Concomitant]
     Dosage: 150 MG, BID
  6. OXYGEN [Concomitant]
  7. CALCIUM WITH VITAMIN D [Concomitant]
     Dosage: 600 MG, UNKNOWN
  8. LOPRESSOR [Concomitant]
     Dosage: 12.5 MG, BID
  9. PROPAFENONE HCL [Concomitant]
     Dosage: 225 MG, BID
  10. MULTI-VITAMIN [Concomitant]
  11. VITAMIN D [Concomitant]
     Dosage: 500 IU, BID
  12. FORTEO [Suspect]
     Indication: OSTEOPOROSIS
     Dosage: 20 UG, QD
     Route: 058
     Dates: start: 20101110, end: 20110320

REACTIONS (7)
  - GENERAL PHYSICAL HEALTH DETERIORATION [None]
  - PULMONARY FIBROSIS [None]
  - ATRIAL FIBRILLATION [None]
  - PULMONARY SARCOIDOSIS [None]
  - CHEST PAIN [None]
  - BRONCHOPULMONARY ASPERGILLOSIS [None]
  - RESPIRATORY FAILURE [None]
